FAERS Safety Report 7125550-9 (Version None)
Quarter: 2010Q4

REPORT INFORMATION
  Report Type: 
  Country: None (occurrence: None)
  Receive Date: 20101129
  Receipt Date: 20101115
  Transmission Date: 20110411
  Serious: Yes (Hospitalization)
  Sender: FDA-Public Use
  Company Number: DE-ROCHE-741717

PATIENT
  Age: 37 Year
  Sex: Male

DRUGS (3)
  1. DIAZEPAM [Suspect]
     Route: 065
  2. NORDAZEPAM [Interacting]
     Route: 065
  3. FLUPIRTINE [Interacting]
     Route: 065

REACTIONS (4)
  - ALTERED STATE OF CONSCIOUSNESS [None]
  - CHROMATURIA [None]
  - DRUG ABUSE [None]
  - DRUG INTERACTION [None]
